FAERS Safety Report 4506275-2 (Version None)
Quarter: 2004Q4

REPORT INFORMATION
  Report Type: 
  Country: None (occurrence: None)
  Receive Date: 20041025
  Receipt Date: 20040723
  Transmission Date: 20050328
  Serious: Yes (Other)
  Sender: FDA-Public Use
  Company Number: US-JNJFOC-20031204575

PATIENT
  Age: 76 Year
  Sex: Male
  Weight: 69.8539 kg

DRUGS (6)
  1. REMICADE [Suspect]
     Indication: CROHN'S DISEASE
     Dosage: INTRAVENOUS
     Route: 042
  2. NEXIUM [Concomitant]
  3. IRON (IRON) [Concomitant]
  4. PENTASA [Concomitant]
  5. GLUCATROL (GLIPIZIDE) [Concomitant]
  6. ENTOCET (BUDESONIDE) [Concomitant]

REACTIONS (3)
  - CHOLELITHIASIS [None]
  - OEDEMA PERIPHERAL [None]
  - VENTRICULAR DYSFUNCTION [None]
